FAERS Safety Report 21793669 (Version 8)
Quarter: 2025Q1

REPORT INFORMATION
  Report Type: Report from Study
  Country: JP (occurrence: JP)
  Receive Date: 20221229
  Receipt Date: 20250304
  Transmission Date: 20250409
  Serious: Yes (Other)
  Sender: TAKEDA
  Company Number: JP-TAKEDA-2022TUS046440

PATIENT
  Age: 8 Year
  Sex: Male
  Weight: 29.5 kg

DRUGS (14)
  1. LISDEXAMFETAMINE DIMESYLATE [Suspect]
     Active Substance: LISDEXAMFETAMINE DIMESYLATE
     Indication: Attention deficit hyperactivity disorder
     Dosage: 30 MILLIGRAM, QD
     Dates: start: 20220609, end: 20220614
  2. LISDEXAMFETAMINE DIMESYLATE [Suspect]
     Active Substance: LISDEXAMFETAMINE DIMESYLATE
     Dosage: 20 MILLIGRAM, QD
     Dates: start: 20220901, end: 20220904
  3. LISDEXAMFETAMINE DIMESYLATE [Suspect]
     Active Substance: LISDEXAMFETAMINE DIMESYLATE
     Dosage: 20 MILLIGRAM, QD
     Dates: start: 20221011, end: 20231010
  4. LEVETIRACETAM [Concomitant]
     Active Substance: LEVETIRACETAM
     Indication: Epilepsy
  5. LEVETIRACETAM [Concomitant]
     Active Substance: LEVETIRACETAM
     Dates: start: 20230215, end: 20230815
  6. LEVETIRACETAM [Concomitant]
     Active Substance: LEVETIRACETAM
  7. TEGRETOL [Concomitant]
     Active Substance: CARBAMAZEPINE
     Indication: Epilepsy
  8. TEGRETOL [Concomitant]
     Active Substance: CARBAMAZEPINE
     Dates: start: 20230215, end: 20230815
  9. TEGRETOL [Concomitant]
     Active Substance: CARBAMAZEPINE
  10. XYZAL [Concomitant]
     Active Substance: LEVOCETIRIZINE DIHYDROCHLORIDE
     Dates: start: 20230215, end: 20230307
  11. FEXOFENADINE HYDROCHLORIDE [Concomitant]
     Active Substance: FEXOFENADINE HYDROCHLORIDE
  12. ERIZAS [Concomitant]
  13. SODIUM FERROUS CITRATE [Concomitant]
     Active Substance: SODIUM FERROUS CITRATE
  14. FYCOMPA [Concomitant]
     Active Substance: PERAMPANEL
     Indication: Prophylaxis
     Dates: start: 20230816, end: 20231010

REACTIONS (7)
  - Epilepsy [Recovering/Resolving]
  - Epilepsy [Recovering/Resolving]
  - Epilepsy [Recovered/Resolved]
  - Sleep disorder [Recovered/Resolved]
  - Decreased appetite [Not Recovered/Not Resolved]
  - Neurodevelopmental disorder [Not Recovered/Not Resolved]
  - Tic [Recovering/Resolving]

NARRATIVE: CASE EVENT DATE: 20220612
